FAERS Safety Report 23800705 (Version 1)
Quarter: 2024Q2

REPORT INFORMATION
  Report Type: Spontaneous
  Country: US (occurrence: None)
  Receive Date: 20240430
  Receipt Date: 20240430
  Transmission Date: 20240716
  Serious: No
  Sender: FDA-Public Use
  Company Number: 2024A038707

PATIENT
  Sex: Male

DRUGS (1)
  1. IMFINZI [Suspect]
     Active Substance: DURVALUMAB
     Dosage: EVERY FOUR WEEKS
     Route: 042

REACTIONS (3)
  - Thyroid disorder [Unknown]
  - Fatigue [Unknown]
  - Pruritus [Unknown]
